FAERS Safety Report 26020633 (Version 1)
Quarter: 2025Q4

REPORT INFORMATION
  Report Type: Spontaneous
  Country: US (occurrence: None)
  Receive Date: 20251107
  Receipt Date: 20251107
  Transmission Date: 20260118
  Serious: Yes (Death)
  Sender: FDA-CTU
  Company Number: None

PATIENT
  Age: 55 Year
  Sex: Female

DRUGS (1)
  1. ADEMPAS [Suspect]
     Active Substance: RIOCIGUAT
     Indication: Pulmonary arterial hypertension
     Dosage: 1MG TID ORAL
     Route: 048
     Dates: start: 20251009, end: 20251105

REACTIONS (5)
  - Dyspnoea [None]
  - Gait disturbance [None]
  - Speech disorder [None]
  - Shock [None]
  - Right ventricular failure [None]

NARRATIVE: CASE EVENT DATE: 20251105
